FAERS Safety Report 5149389-9 (Version None)
Quarter: 2006Q4

REPORT INFORMATION
  Report Type: 
  Country: None (occurrence: None)
  Receive Date: 20061113
  Receipt Date: 20051214
  Transmission Date: 20070319
  Serious: No
  Sender: FDA-Public Use
  Company Number: US-GLAXOSMITHKLINE-A0585847A

PATIENT
  Age: 83 Year
  Sex: Female

DRUGS (4)
  1. COREG [Suspect]
     Dosage: 3.125MG TWICE PER DAY
     Route: 048
     Dates: start: 20050101
  2. AVAPRO [Concomitant]
  3. LIPITOR [Concomitant]
  4. ALEVE [Concomitant]

REACTIONS (2)
  - DIZZINESS [None]
  - ORAL PAIN [None]
